FAERS Safety Report 4992844-2 (Version None)
Quarter: 2006Q2

REPORT INFORMATION
  Report Type: 
  Country: None (occurrence: None)
  Receive Date: 20060504
  Receipt Date: 20050825
  Transmission Date: 20061013
  Serious: Yes (Hospitalization, Disabling)
  Sender: FDA-Public Use
  Company Number: US-MERCK-0508USA04262

PATIENT
  Age: 57 Year
  Sex: Female
  Weight: 59 kg

DRUGS (2)
  1. VIOXX [Suspect]
     Indication: PAIN
     Route: 048
     Dates: start: 20020601, end: 20040930
  2. VIOXX [Suspect]
     Route: 048
     Dates: start: 20030820, end: 20040930

REACTIONS (15)
  - ABDOMINAL PAIN UPPER [None]
  - ANAEMIA OF CHRONIC DISEASE [None]
  - ARTHRALGIA [None]
  - CEREBROVASCULAR ACCIDENT [None]
  - ESSENTIAL HYPERTENSION [None]
  - HEADACHE [None]
  - HERPES ZOSTER [None]
  - LOCALISED INFECTION [None]
  - NEPHROSCLEROSIS [None]
  - OEDEMA PERIPHERAL [None]
  - PAIN IN EXTREMITY [None]
  - PARAESTHESIA [None]
  - PRESCRIBED OVERDOSE [None]
  - RENAL VESSEL DISORDER [None]
  - ROAD TRAFFIC ACCIDENT [None]
